FAERS Safety Report 8518705-X (Version None)
Quarter: 2012Q3

REPORT INFORMATION
  Report Type: 
  Country: None (occurrence: None)
  Receive Date: 20120718
  Receipt Date: 20110615
  Transmission Date: 20120928
  Serious: No
  Sender: FDA-Public Use
  Company Number: US-BRISTOL-MYERS SQUIBB COMPANY-15834864

PATIENT
  Age: 86 Year
  Sex: Female

DRUGS (5)
  1. METOPROLOL SUCCINATE [Concomitant]
     Dosage: 1DF = METOPROLOL 20 MG IN THE AM, 25 MG PM
  2. SYNTHROID [Concomitant]
     Dosage: 1DF= SYNTHROID 112 MCG 1/2 TAB DAILY
  3. COUMADIN [Suspect]
     Dosage: 1DF= 2 MG ONE AND HALF TABLET EVERY DAY EXCEPT FOR SUNDAYS WHEN SHE TAKES ONE PILL.
  4. LORATADINE [Concomitant]
     Indication: HYPERSENSITIVITY
  5. TRENTAL [Concomitant]

REACTIONS (1)
  - INTERNATIONAL NORMALISED RATIO INCREASED [None]
